FAERS Safety Report 12706439 (Version 6)
Quarter: 2019Q2

REPORT INFORMATION
  Report Type: Spontaneous
  Country: US (occurrence: US)
  Receive Date: 20160901
  Receipt Date: 20190513
  Transmission Date: 20190711
  Serious: No
  Sender: FDA-Public Use
  Company Number: US-PFIZER INC-2016085461

PATIENT
  Age: 54 Year
  Sex: Female

DRUGS (3)
  1. XELJANZ [Suspect]
     Active Substance: TOFACITINIB CITRATE
     Indication: DERMATITIS ATOPIC
     Dosage: 5 MG, 2X/DAY
     Dates: start: 20160215
  2. XELJANZ [Suspect]
     Active Substance: TOFACITINIB CITRATE
     Indication: AUTOIMMUNE DISORDER
     Dosage: 5 MG, DAILY
     Route: 048
     Dates: start: 201603
  3. AZATHIOPRINE [AZATHIOPRINE SODIUM] [Concomitant]
     Dosage: UNK UNK, DAILY(DAILY FOR 3 WEEKS )

REACTIONS (19)
  - Off label use [Unknown]
  - Headache [Unknown]
  - Anaemia [Unknown]
  - Diarrhoea [Unknown]
  - Rash [Unknown]
  - Rash pruritic [Unknown]
  - Product use in unapproved indication [Unknown]
  - Drug ineffective for unapproved indication [Unknown]
  - Abdominal pain [Unknown]
  - Conjunctivitis [Unknown]
  - Condition aggravated [Unknown]
  - Abdominal pain upper [Unknown]
  - Infection [Unknown]
  - Intentional product misuse [Unknown]
  - Influenza [Unknown]
  - Blister [Unknown]
  - Weight increased [Unknown]
  - Oral herpes [Unknown]
  - Nasopharyngitis [Unknown]
